FAERS Safety Report 25232243 (Version 2)
Quarter: 2025Q2

REPORT INFORMATION
  Report Type: Spontaneous
  Country: US (occurrence: US)
  Receive Date: 20250423
  Receipt Date: 20250514
  Transmission Date: 20250716
  Serious: Yes (Other)
  Sender: MALLINCKRODT
  Company Number: US-MALLINCKRODT-MNK202502254

PATIENT
  Age: 43 Year
  Sex: Female
  Weight: 84 kg

DRUGS (28)
  1. CORTICOTROPIN [Suspect]
     Active Substance: CORTICOTROPIN
     Indication: Ankylosing spondylitis
     Route: 058
     Dates: start: 20230322
  2. DOXEPIN [Concomitant]
     Active Substance: DOXEPIN
  3. DULOXETINE [Concomitant]
     Active Substance: DULOXETINE
  4. OXCARBAZEPINE [Concomitant]
     Active Substance: OXCARBAZEPINE
  5. ROPINIROLE [Concomitant]
     Active Substance: ROPINIROLE
  6. SYMBICORT [Concomitant]
     Active Substance: BUDESONIDE\FORMOTEROL FUMARATE DIHYDRATE
     Route: 055
  7. VENTOLIN HFA [Concomitant]
     Active Substance: ALBUTEROL SULFATE
     Route: 055
  8. VITAMIN D2 [Concomitant]
     Active Substance: ERGOCALCIFEROL
  9. TIZANIDINE [Concomitant]
     Active Substance: TIZANIDINE
  10. VITAMIN B12 [Concomitant]
     Active Substance: CYANOCOBALAMIN
  11. TUMS [Concomitant]
     Active Substance: CALCIUM CARBONATE
  12. SENNA LEAF [Concomitant]
     Active Substance: SENNA LEAF
  13. REFRESH TEARS [Concomitant]
     Active Substance: CARBOXYMETHYLCELLULOSE SODIUM
  14. BIFIDOBACTERIUM SPP.\LACTOBACILLUS ACIDOPHILUS [Concomitant]
     Active Substance: BIFIDOBACTERIUM SPP.\LACTOBACILLUS ACIDOPHILUS
  15. MAGNESIUM [Concomitant]
     Active Substance: MAGNESIUM
  16. FERROUS SULFATE [Concomitant]
     Active Substance: FERROUS SULFATE
  17. DIPHENHYDRAMINE [Concomitant]
     Active Substance: DIPHENHYDRAMINE
  18. CLARITHROMYCIN [Concomitant]
     Active Substance: CLARITHROMYCIN
  19. TALTZ [Concomitant]
     Active Substance: IXEKIZUMAB
     Dates: start: 20250211
  20. ZOLPIDEM [Concomitant]
     Active Substance: ZOLPIDEM TARTRATE
  21. GABAPENTIN [Concomitant]
     Active Substance: GABAPENTIN
  22. DEXLANSOPRAZOLE [Concomitant]
     Active Substance: DEXLANSOPRAZOLE
  23. FOLIC ACID [Concomitant]
     Active Substance: FOLIC ACID
  24. METOPROLOL SUCCINATE [Concomitant]
     Active Substance: METOPROLOL SUCCINATE
  25. FAMOTIDINE [Concomitant]
     Active Substance: FAMOTIDINE
  26. MOVANTIK [Concomitant]
     Active Substance: NALOXEGOL OXALATE
  27. BUSPIRONE [Concomitant]
     Active Substance: BUSPIRONE HYDROCHLORIDE
  28. BUTALBITAL, ACETAMINOPHEN, AND CAFFEINE [Concomitant]
     Active Substance: ACETAMINOPHEN\BUTALBITAL\CAFFEINE

REACTIONS (2)
  - Neuropathy peripheral [Not Recovered/Not Resolved]
  - Swelling [Unknown]
